FAERS Safety Report 7580158-6 (Version None)
Quarter: 2011Q2

REPORT INFORMATION
  Report Type: 
  Country: None (occurrence: None)
  Receive Date: 20110629
  Receipt Date: 20110609
  Transmission Date: 20111010
  Serious: Yes (Hospitalization)
  Sender: FDA-Public Use
  Company Number: US-BAYER-201032108NA

PATIENT
  Age: 33 Year
  Sex: Female
  Weight: 54.545 kg

DRUGS (11)
  1. YAZ [Suspect]
     Indication: ACNE
     Dosage: 1 DF, QD
     Route: 048
     Dates: start: 20071001, end: 20100101
  2. HYDROMORPHONE HCL [Concomitant]
     Dosage: UNK
     Dates: start: 20100113, end: 20100114
  3. CEFAZOLIN [Concomitant]
     Dosage: UNK
     Dates: start: 20100113, end: 20100114
  4. MEDROL [METHYLPREDNISOLONE ACETATE] [Concomitant]
     Dosage: UNK
     Dates: start: 20100113
  5. NORCO [Concomitant]
     Indication: PAIN
     Dosage: 1 DF, Q4HR
  6. SKELAXIN [Concomitant]
     Dosage: 800 MG, PRN
  7. FENTANYL [Concomitant]
     Dosage: UNK
     Dates: start: 20100113, end: 20100113
  8. VERSED [Concomitant]
     Dosage: UNK
     Dates: start: 20100113, end: 20100113
  9. IBUPROFEN [Concomitant]
     Dates: start: 20080801
  10. SENOKOT [Concomitant]
     Dosage: UNK
     Dates: start: 20100113, end: 20100114
  11. RANITIDINE [Concomitant]
     Dosage: UNK
     Dates: start: 20100113, end: 20100114

REACTIONS (2)
  - DEEP VEIN THROMBOSIS [None]
  - THROMBOSIS [None]
